FAERS Safety Report 9654802 (Version 2)
Quarter: 2013Q4

REPORT INFORMATION
  Report Type: Spontaneous
  Country: US (occurrence: US)
  Receive Date: 20131029
  Receipt Date: 20131029
  Transmission Date: 20140711
  Serious: Yes (Other)
  Sender: FDA-Public Use
  Company Number: US-NAPPMUNDI-USA-2012-0085345

PATIENT
  Sex: Male

DRUGS (2)
  1. OXYCONTIN TABLETS [Suspect]
     Indication: SUBSTANCE ABUSE
  2. MARIJUANA [Suspect]
     Indication: SUBSTANCE ABUSE

REACTIONS (2)
  - Drug dependence [Recovered/Resolved]
  - Substance abuse [Unknown]
